FAERS Safety Report 8887640 (Version 1)
Quarter: 2012Q4

REPORT INFORMATION
  Report Type: Spontaneous
  Country: US (occurrence: None)
  Receive Date: 20121101
  Receipt Date: 20121101
  Transmission Date: 20130627
  Serious: Yes (Other)
  Sender: FDA-Public Use
  Company Number: None

PATIENT
  Sex: Female
  Weight: 68.04 kg

DRUGS (1)
  1. OXYCONTIN [Suspect]
     Indication: CHRONIC BACK PAIN
     Route: 048

REACTIONS (5)
  - Gastrooesophageal reflux disease [None]
  - Anxiety [None]
  - Hyperhidrosis [None]
  - Product formulation issue [None]
  - Abdominal discomfort [None]
